FAERS Safety Report 23729340 (Version 1)
Quarter: 2024Q2

REPORT INFORMATION
  Report Type: Spontaneous
  Country: CN (occurrence: None)
  Receive Date: 20240410
  Receipt Date: 20240410
  Transmission Date: 20240716
  Serious: Yes (Other)
  Sender: FDA-Public Use
  Company Number: 2024A081765

PATIENT
  Age: 70 Year
  Sex: Female

DRUGS (6)
  1. BUDESONIDE [Suspect]
     Active Substance: BUDESONIDE
     Indication: Productive cough
     Route: 055
     Dates: start: 20240320, end: 20240320
  2. BUDESONIDE [Suspect]
     Active Substance: BUDESONIDE
     Indication: Cough
     Route: 055
     Dates: start: 20240320, end: 20240320
  3. ACETYLCYSTEINE [Concomitant]
     Active Substance: ACETYLCYSTEINE
     Indication: Productive cough
     Route: 055
     Dates: start: 20240320, end: 20240320
  4. ACETYLCYSTEINE [Concomitant]
     Active Substance: ACETYLCYSTEINE
     Indication: Cough
     Route: 055
     Dates: start: 20240320, end: 20240320
  5. TERBUTALINE [Concomitant]
     Active Substance: TERBUTALINE
     Indication: Productive cough
     Route: 055
     Dates: start: 20240320, end: 20240320
  6. TERBUTALINE [Concomitant]
     Active Substance: TERBUTALINE
     Indication: Cough
     Route: 055
     Dates: start: 20240320, end: 20240320

REACTIONS (2)
  - Chills [Recovering/Resolving]
  - Tachypnoea [Recovering/Resolving]

NARRATIVE: CASE EVENT DATE: 20240320
